FAERS Safety Report 6944804-X (Version None)
Quarter: 2010Q3

REPORT INFORMATION
  Report Type: 
  Country: None (occurrence: None)
  Receive Date: 20100827
  Receipt Date: 20100818
  Transmission Date: 20110219
  Serious: Yes (Other)
  Sender: FDA-Public Use
  Company Number: JP-ASTRAZENECA-2010SE39161

PATIENT
  Age: 55 Year
  Sex: Male
  Weight: 78 kg

DRUGS (16)
  1. DIPRIVAN [Suspect]
     Indication: INDUCTION AND MAINTENANCE OF ANAESTHESIA
     Route: 042
  2. DIPRIVAN [Suspect]
     Dosage: MAINTENANCE 2 - 4 MG/KG/HR
     Route: 042
  3. SEVOFLURANE [Suspect]
     Indication: INDUCTION AND MAINTENANCE OF ANAESTHESIA
     Route: 055
  4. SEVOFLURANE [Suspect]
     Route: 055
  5. FAMOTIDINE [Concomitant]
     Indication: PREMEDICATION
     Route: 042
  6. ATROPINE [Concomitant]
     Indication: PREMEDICATION
     Route: 030
  7. FENTANYL CITRATE [Concomitant]
     Indication: INDUCTION OF ANAESTHESIA
     Route: 042
  8. VECURONIUM BROMIDE [Concomitant]
     Indication: GENERAL ANAESTHESIA
     Dosage: INDUCTION 10 ML + ADDITIONAL INJECTION: TOTAL 19 ML
     Route: 042
  9. LIDOCAINE [Concomitant]
     Indication: EPIDURAL ANAESTHESIA
     Dosage: 1.5 % 7 ML + 1 % 5 ML/HR CONTINUOUSLY
     Route: 008
  10. DOPAMINE HCL [Concomitant]
     Indication: BLOOD PRESSURE MANAGEMENT
     Dosage: 3 - 4 MICRO-G/KG/MIN
     Route: 042
  11. ETILEFRINE HYDROCHLORIDE [Concomitant]
     Route: 065
  12. EPHEDRIN [Concomitant]
     Route: 065
  13. FUROSEMIDE [Concomitant]
     Route: 065
  14. MARCAINE [Concomitant]
     Indication: EPIDURAL ANAESTHESIA
     Dosage: 117 ML (3 ML/HR)
     Route: 008
  15. MORPHINE HYDROCHLORIDE [Concomitant]
     Indication: EPIDURAL ANAESTHESIA
     Dosage: 2 MG + 8 MG (3 ML/HR)
     Route: 008
  16. DROPERIDOL [Concomitant]
     Indication: EPIDURAL ANAESTHESIA
     Dosage: 5 MG(3 ML/HR)
     Route: 008

REACTIONS (2)
  - HYPERCREATINAEMIA [None]
  - PYREXIA [None]
